FAERS Safety Report 6115337-8 (Version None)
Quarter: 2009Q1

REPORT INFORMATION
  Report Type: 
  Country: None (occurrence: None)
  Receive Date: 20090313
  Receipt Date: 20090305
  Transmission Date: 20090719
  Serious: Yes (Other)
  Sender: FDA-Public Use
  Company Number: BR-JNJFOC-20090301695

PATIENT
  Age: 3 Decade
  Sex: Female
  Weight: 80 kg

DRUGS (3)
  1. MICRONOR [Suspect]
     Indication: CONTRACEPTION
     Route: 048
  2. UNSPECIFIED ANALGESICS [Concomitant]
     Indication: ENDODONTIC PROCEDURE
     Route: 065
  3. UNSPECIFIED ANTIBIOTICS [Concomitant]
     Indication: ENDODONTIC PROCEDURE
     Route: 065

REACTIONS (4)
  - ABDOMINAL DISTENSION [None]
  - ABDOMINAL PAIN [None]
  - ABDOMINAL PAIN UPPER [None]
  - RENAL COLIC [None]
